FAERS Safety Report 20716885 (Version 1)
Quarter: 2022Q2

REPORT INFORMATION
  Report Type: Spontaneous
  Country: BE (occurrence: BE)
  Receive Date: 20220416
  Receipt Date: 20220416
  Transmission Date: 20220721
  Serious: Yes (Death, Other)
  Sender: FDA-Public Use
  Company Number: BE-AMGEN-BELSP2022061806

PATIENT
  Age: 73 Year
  Sex: Female

DRUGS (5)
  1. XGEVA [Suspect]
     Active Substance: DENOSUMAB
     Indication: Breast cancer metastatic
     Dosage: UNK
     Route: 065
  2. XGEVA [Suspect]
     Active Substance: DENOSUMAB
     Indication: Metastases to bone
  3. TAMOXIFEN [Concomitant]
     Active Substance: TAMOXIFEN
  4. LETROZOLE [Concomitant]
     Active Substance: LETROZOLE
  5. FULVESTRANT [Concomitant]
     Active Substance: FULVESTRANT

REACTIONS (7)
  - Death [Fatal]
  - Renal impairment [Unknown]
  - Breast cancer metastatic [Unknown]
  - Stomatitis [Unknown]
  - C-reactive protein increased [Unknown]
  - Folate deficiency [Unknown]
  - Blood folate increased [Unknown]

NARRATIVE: CASE EVENT DATE: 20200101
